FAERS Safety Report 14286545 (Version 1)
Quarter: 2017Q4

REPORT INFORMATION
  Report Type: Spontaneous
  Country: US (occurrence: US)
  Receive Date: 20171214
  Receipt Date: 20171214
  Transmission Date: 20180321
  Serious: No
  Sender: FDA-Public Use
  Company Number: US-ASTELLAS-2017US028914

PATIENT
  Sex: Male

DRUGS (2)
  1. TARCEVA [Suspect]
     Active Substance: ERLOTINIB HYDROCHLORIDE
     Indication: BENIGN CARTILAGE NEOPLASM
  2. TARCEVA [Suspect]
     Active Substance: ERLOTINIB HYDROCHLORIDE
     Indication: BENIGN BONE NEOPLASM
     Route: 048

REACTIONS (5)
  - Hair texture abnormal [Unknown]
  - Flushing [Unknown]
  - Off label use [Unknown]
  - Diarrhoea [Unknown]
  - Intentional product use issue [Unknown]
